FAERS Safety Report 24881559 (Version 1)
Quarter: 2025Q1

REPORT INFORMATION
  Report Type: Other
  Country: US (occurrence: US)
  Receive Date: 20250124
  Receipt Date: 20250124
  Transmission Date: 20250409
  Serious: Yes (Hospitalization, Other)
  Sender: BIONPHARMA INC.
  Company Number: US-Bion-014678

PATIENT
  Age: 59 Year
  Sex: Female

DRUGS (9)
  1. VALPROIC ACID [Suspect]
     Active Substance: VALPROIC ACID
     Indication: Hallucination, auditory
  2. QUETIAPINE [Concomitant]
     Active Substance: QUETIAPINE
     Indication: Hallucination, auditory
  3. SERTRALINE [Concomitant]
     Active Substance: SERTRALINE HYDROCHLORIDE
     Indication: Hallucination, auditory
  4. MIRTAZAPINE [Concomitant]
     Active Substance: MIRTAZAPINE
     Indication: Hallucination, auditory
  5. DEFERIPRONE [Concomitant]
     Active Substance: DEFERIPRONE
     Indication: Neurodegeneration with brain iron accumulation disorder
  6. VALPROIC ACID [Suspect]
     Active Substance: VALPROIC ACID
     Indication: Psychotic symptom
  7. QUETIAPINE [Concomitant]
     Active Substance: QUETIAPINE
     Indication: Psychotic symptom
  8. SERTRALINE [Concomitant]
     Active Substance: SERTRALINE HYDROCHLORIDE
     Indication: Psychotic symptom
  9. MIRTAZAPINE [Concomitant]
     Active Substance: MIRTAZAPINE
     Indication: Psychotic symptom

REACTIONS (4)
  - Delirium [Recovered/Resolved]
  - Neuroleptic malignant syndrome [Unknown]
  - Pancytopenia [Unknown]
  - Drug ineffective for unapproved indication [Not Recovered/Not Resolved]
